FAERS Safety Report 14583347 (Version 1)
Quarter: 2018Q1

REPORT INFORMATION
  Report Type: Spontaneous
  Country: RO (occurrence: RO)
  Receive Date: 20180228
  Receipt Date: 20180228
  Transmission Date: 20180509
  Serious: Yes (Disabling)
  Sender: FDA-Public Use
  Company Number: RO-OTSUKA-DJ20110640

PATIENT

DRUGS (2)
  1. ABILIFY [Suspect]
     Active Substance: ARIPIPRAZOLE
     Indication: SCHIZOPHRENIA
     Route: 048
     Dates: start: 2002
  2. DEPAKINE CHRONO [Suspect]
     Active Substance: VALPROATE SODIUM
     Indication: SCHIZOPHRENIA
     Route: 065
     Dates: start: 20100202

REACTIONS (3)
  - Aphasia [Unknown]
  - Ischaemic stroke [Unknown]
  - Hemiplegia [Unknown]

NARRATIVE: CASE EVENT DATE: 20100802
